FAERS Safety Report 18181791 (Version 3)
Quarter: 2023Q2

REPORT INFORMATION
  Report Type: Spontaneous
  Country: ES (occurrence: ES)
  Receive Date: 20200821
  Receipt Date: 20230605
  Transmission Date: 20230722
  Serious: Yes (Hospitalization)
  Sender: FDA-Public Use
  Company Number: None

PATIENT
  Age: 36 Year
  Sex: Female

DRUGS (3)
  1. OMEPRAZOLE [Suspect]
     Active Substance: OMEPRAZOLE
     Indication: Gastritis prophylaxis
     Dosage: UNK
     Route: 048
     Dates: start: 20191023, end: 20191110
  2. IBUPROFEN [Suspect]
     Active Substance: IBUPROFEN
     Indication: Pharyngotonsillitis
     Dosage: UNK
     Route: 048
     Dates: start: 20191018, end: 20191018
  3. AZITHROMYCIN [Suspect]
     Active Substance: AZITHROMYCIN
     Indication: Pharyngotonsillitis
     Dosage: 500 MILLIGRAM, QD (500MG/24H)
     Route: 048
     Dates: start: 20191023, end: 20191025

REACTIONS (1)
  - Drug reaction with eosinophilia and systemic symptoms [Recovered/Resolved]

NARRATIVE: CASE EVENT DATE: 20191025
